FAERS Safety Report 12509641 (Version 1)
Quarter: 2016Q2

REPORT INFORMATION
  Report Type: Spontaneous
  Country: GB (occurrence: GB)
  Receive Date: 20160629
  Receipt Date: 20160629
  Transmission Date: 20160815
  Serious: Yes (Other)
  Sender: FDA-Public Use
  Company Number: GB-FRESENIUS KABI-FK201603934

PATIENT
  Age: 83 Year
  Sex: Male

DRUGS (20)
  1. FLAVOXATE HYDROCHLORIDE. [Concomitant]
     Active Substance: FLAVOXATE HYDROCHLORIDE
  2. LEVOMEPROMAZINE [Concomitant]
     Active Substance: LEVOMEPROMAZINE
  3. FENTANYL. [Concomitant]
     Active Substance: FENTANYL
  4. PARACETAMOL [Concomitant]
     Active Substance: ACETAMINOPHEN
  5. PROCHLORPEMAZINE [Concomitant]
  6. FRAGMIN [Concomitant]
     Active Substance: DALTEPARIN SODIUM
  7. HALOPERIDOL. [Concomitant]
     Active Substance: HALOPERIDOL
  8. LANSOPRAZOL [Concomitant]
     Active Substance: LANSOPRAZOLE
  9. LAXIDO [Concomitant]
     Active Substance: POLYETHYLENE GLYCOL 3350\POTASSIUM CHLORIDE\SODIUM BICARBONATE\SODIUM CHLORIDE
  10. CHLORHEXIDINE GLUCONATE. [Concomitant]
     Active Substance: CHLORHEXIDINE GLUCONATE
  11. ENZALUTAMIDE [Concomitant]
     Active Substance: ENZALUTAMIDE
  12. CYCLIZINE [Concomitant]
     Active Substance: CYCLIZINE
  13. MATRIFEN [Concomitant]
     Active Substance: FENTANYL
  14. COLECALCIFEROL [Concomitant]
     Active Substance: CHOLECALCIFEROL
  15. FLUDROCORTISONE [Concomitant]
     Active Substance: FLUDROCORTISONE
  16. ZOLEDRONIC ACID (MANUFACTURER UNKNOWN) [Suspect]
     Active Substance: ZOLEDRONIC ACID
     Indication: PROSTATE CANCER METASTATIC
     Route: 042
  17. DEXAMETHASONE. [Concomitant]
     Active Substance: DEXAMETHASONE
  18. NYSTATIN. [Concomitant]
     Active Substance: NYSTATIN
  19. ORAMORPH [Concomitant]
     Active Substance: MORPHINE SULFATE
  20. SERTRALINE [Concomitant]
     Active Substance: SERTRALINE HYDROCHLORIDE

REACTIONS (5)
  - Oroantral fistula [Not Recovered/Not Resolved]
  - Exposed bone in jaw [Not Recovered/Not Resolved]
  - Oral disorder [Not Recovered/Not Resolved]
  - Mucosal inflammation [Unknown]
  - Osteonecrosis of jaw [Not Recovered/Not Resolved]

NARRATIVE: CASE EVENT DATE: 201606
